FAERS Safety Report 8707360 (Version 6)
Quarter: 2016Q2

REPORT INFORMATION
  Report Type: Spontaneous
  Country: US (occurrence: US)
  Receive Date: 20120803
  Receipt Date: 20160407
  Transmission Date: 20160815
  Serious: Yes (Hospitalization, Disabling, Other)
  Sender: FDA-Public Use
  Company Number: US-ASTRAZENECA-2012SE53077

PATIENT
  Age: 598 Month
  Sex: Male
  Weight: 83.9 kg

DRUGS (38)
  1. CRESTOR [Suspect]
     Active Substance: ROSUVASTATIN CALCIUM
     Indication: BLOOD CHOLESTEROL INCREASED
     Route: 048
     Dates: start: 1985
  2. LINAGLIPTIN [Concomitant]
     Active Substance: LINAGLIPTIN
     Route: 048
     Dates: start: 20150106
  3. MULTIVITAMIN [Concomitant]
     Active Substance: VITAMINS
     Route: 065
  4. SENNA [Concomitant]
     Active Substance: SENNA LEAF\SENNOSIDES\SENNOSIDES A AND B
  5. LASIX [Concomitant]
     Active Substance: FUROSEMIDE
  6. SIMVASTATIN. [Concomitant]
     Active Substance: SIMVASTATIN
     Route: 065
  7. MOTRIN [Concomitant]
     Active Substance: IBUPROFEN
  8. VICODIN [Concomitant]
     Active Substance: ACETAMINOPHEN\HYDROCODONE BITARTRATE
  9. TRETINOIN. [Concomitant]
     Active Substance: TRETINOIN
     Dates: start: 1985
  10. MORPHIN [Concomitant]
     Active Substance: MORPHINE
     Route: 065
  11. PAROXETINE. [Concomitant]
     Active Substance: PAROXETINE
     Route: 065
  12. ALBUTEROL. [Concomitant]
     Active Substance: ALBUTEROL
     Route: 065
  13. NITROGLYCERIN. [Concomitant]
     Active Substance: NITROGLYCERIN
  14. VARDENAFIL [Concomitant]
     Active Substance: VARDENAFIL
  15. ACETAMINOPHEN\HYDROCODONE BITARTRATE [Concomitant]
     Active Substance: ACETAMINOPHEN\HYDROCODONE BITARTRATE
     Route: 065
  16. TRAZODONE [Concomitant]
     Active Substance: TRAZODONE HYDROCHLORIDE
     Route: 065
  17. IMIQUIMOD. [Concomitant]
     Active Substance: IMIQUIMOD
  18. RABEPRAZOLE [Concomitant]
     Active Substance: RABEPRAZOLE
  19. LOVASTATIN. [Concomitant]
     Active Substance: LOVASTATIN
     Dates: start: 1985
  20. DEXTRAN [Concomitant]
     Active Substance: DEXTRAN
     Route: 065
  21. PROZAC [Concomitant]
     Active Substance: FLUOXETINE HYDROCHLORIDE
     Route: 065
  22. HEPARIN [Concomitant]
     Active Substance: HEPARIN SODIUM
     Route: 065
  23. ALEGRA [Concomitant]
  24. CYANOCOBALAMIN. [Concomitant]
     Active Substance: CYANOCOBALAMIN
     Route: 048
     Dates: start: 20120619
  25. OMEPRAZOLE. [Concomitant]
     Active Substance: OMEPRAZOLE
     Route: 048
  26. LIPITOR [Concomitant]
     Active Substance: ATORVASTATIN CALCIUM
     Dates: start: 1985
  27. OLANZAPINE. [Concomitant]
     Active Substance: OLANZAPINE
     Dates: start: 1985
  28. LISINOPRIL. [Concomitant]
     Active Substance: LISINOPRIL
     Indication: BLOOD PRESSURE MEASUREMENT
     Route: 048
     Dates: start: 20141219
  29. GABAPENTIN. [Concomitant]
     Active Substance: GABAPENTIN
     Route: 048
  30. BUSPAR [Concomitant]
     Active Substance: BUSPIRONE HYDROCHLORIDE
     Indication: ANXIETY
  31. COLACE [Concomitant]
     Active Substance: DOCUSATE SODIUM
     Route: 048
  32. PREDNISONE. [Concomitant]
     Active Substance: PREDNISONE
     Dates: start: 1985
  33. CRESTOR [Suspect]
     Active Substance: ROSUVASTATIN CALCIUM
     Indication: BLOOD CHOLESTEROL INCREASED
     Route: 048
     Dates: start: 200704, end: 201002
  34. ASPIRIN. [Concomitant]
     Active Substance: ASPIRIN
     Route: 048
  35. BUSPIRON [Concomitant]
     Active Substance: BUSPIRONE HYDROCHLORIDE
     Route: 048
  36. METFORMIN [Concomitant]
     Active Substance: METFORMIN HYDROCHLORIDE
     Indication: DIABETES MELLITUS
  37. GLIPIZIDE. [Concomitant]
     Active Substance: GLIPIZIDE
  38. CLONAZEPAM. [Concomitant]
     Active Substance: CLONAZEPAM

REACTIONS (17)
  - Coronary artery disease [Not Recovered/Not Resolved]
  - Ischaemia [Unknown]
  - Type 2 diabetes mellitus [Not Recovered/Not Resolved]
  - Acute kidney injury [Not Recovered/Not Resolved]
  - Arrhythmia [Unknown]
  - Obesity [Unknown]
  - Myocardial infarction [Not Recovered/Not Resolved]
  - Post-traumatic stress disorder [Not Recovered/Not Resolved]
  - Cerebrovascular accident [Unknown]
  - Syncope [Unknown]
  - Blood triglycerides increased [Not Recovered/Not Resolved]
  - Cardiomyopathy [Unknown]
  - Diabetic neuropathy [Unknown]
  - Cardiac failure congestive [Unknown]
  - Liver disorder [Not Recovered/Not Resolved]
  - Hypertension [Unknown]
  - Angina pectoris [Unknown]

NARRATIVE: CASE EVENT DATE: 199409
